FAERS Safety Report 5115880-4 (Version None)
Quarter: 2006Q3

REPORT INFORMATION
  Report Type: 
  Country: None (occurrence: None)
  Receive Date: 20060927
  Receipt Date: 20060918
  Transmission Date: 20061208
  Serious: Yes (Other)
  Sender: FDA-Public Use
  Company Number: PHBS2006FI14326

PATIENT
  Age: 70 Year
  Sex: Male

DRUGS (3)
  1. ZOMETA [Suspect]
     Indication: MULTIPLE MYELOMA
     Route: 065
     Dates: start: 20030801, end: 20040701
  2. BONEFOS [Suspect]
     Route: 065
     Dates: start: 20040701, end: 20060101
  3. RADIOTHERAPY [Suspect]
     Dosage: UP TO 65 GRAYS
     Route: 065

REACTIONS (4)
  - DENTAL PROSTHESIS USER [None]
  - OSTEONECROSIS [None]
  - RADIATION INJURY [None]
  - SWELLING [None]
